FAERS Safety Report 6172077-7 (Version None)
Quarter: 2009Q2

REPORT INFORMATION
  Report Type: 
  Country: None (occurrence: None)
  Receive Date: 20090428
  Receipt Date: 20090428
  Transmission Date: 20091009
  Serious: Yes (Death)
  Sender: FDA-Public Use
  Company Number: None

PATIENT
  Age: 56 Year
  Sex: Male
  Weight: 125.6464 kg

DRUGS (1)
  1. PREGABALIN PFIZER [Suspect]
     Indication: CHEST PAIN
     Dosage: FEW DAYS

REACTIONS (1)
  - SUDDEN DEATH [None]
